FAERS Safety Report 7299047-X (Version None)
Quarter: 2011Q1

REPORT INFORMATION
  Report Type: 
  Country: None (occurrence: None)
  Receive Date: 20110217
  Receipt Date: 20110217
  Transmission Date: 20110831
  Serious: Yes (Death)
  Sender: FDA-Public Use
  Company Number: US-ROXANE LABORATORIES, INC.-2011-RO-00196RO

PATIENT
  Sex: Female

DRUGS (9)
  1. COPAXONE [Concomitant]
  2. TYLENOL [Concomitant]
     Indication: PREMEDICATION
  3. COLACE [Concomitant]
  4. ABILIFY [Concomitant]
     Dosage: 5 MG
  5. REMERON [Concomitant]
     Dosage: 45 MG
  6. BACLOFEN [Concomitant]
  7. AMANTADINE HCL [Concomitant]
  8. MEGESTROL ACETATE [Suspect]
     Indication: DECREASED APPETITE
     Dosage: 800 MG
     Route: 048
     Dates: start: 20101004, end: 20101104
  9. BENADRYL [Concomitant]

REACTIONS (1)
  - PULMONARY EMBOLISM [None]
